FAERS Safety Report 7212512-6 (Version None)
Quarter: 2011Q1

REPORT INFORMATION
  Report Type: 
  Country: None (occurrence: None)
  Receive Date: 20110106
  Receipt Date: 20101229
  Transmission Date: 20110831
  Serious: Yes (Other)
  Sender: FDA-Public Use
  Company Number: US-PFIZER INC-2010181803

PATIENT
  Sex: Male

DRUGS (2)
  1. OXYCODONE [Suspect]
  2. XANAX [Suspect]

REACTIONS (1)
  - DRUG ABUSE [None]
